FAERS Safety Report 21504224 (Version 8)
Quarter: 2025Q4

REPORT INFORMATION
  Report Type: Spontaneous
  Country: CA (occurrence: CA)
  Receive Date: 20221025
  Receipt Date: 20251021
  Transmission Date: 20260117
  Serious: Yes (Death, Life-Threatening, Hospitalization, Disabling)
  Sender: ROCHE
  Company Number: CA-ROCHE-3202185

PATIENT
  Age: 43 Year
  Sex: Female
  Weight: 68 kg

DRUGS (34)
  1. ACTEMRA [Suspect]
     Active Substance: TOCILIZUMAB
     Indication: Rheumatoid arthritis
     Route: 065
  2. TOCILIZUMAB [Suspect]
     Active Substance: TOCILIZUMAB
     Indication: Product used for unknown indication
     Route: 016
  3. RITUXIMAB [Suspect]
     Active Substance: RITUXIMAB
     Indication: Rheumatoid arthritis
     Route: 042
  4. RITUXIMAB [Suspect]
     Active Substance: RITUXIMAB
     Route: 042
  5. RITUXIMAB [Suspect]
     Active Substance: RITUXIMAB
     Indication: Rheumatoid arthritis
     Route: 058
  6. MYCOPHENOLATE MOFETIL [Suspect]
     Active Substance: MYCOPHENOLATE MOFETIL
     Indication: Product used for unknown indication
     Route: 065
  7. NAPROXEN [Suspect]
     Active Substance: NAPROXEN
     Indication: Rheumatoid arthritis
     Route: 065
  8. NAPROXEN SODIUM [Suspect]
     Active Substance: NAPROXEN SODIUM
     Indication: Rheumatoid arthritis
     Route: 065
  9. PANTOPRAZOLE SODIUM ANHYDROUS [Concomitant]
     Active Substance: PANTOPRAZOLE SODIUM ANHYDROUS
  10. ATIVAN [Concomitant]
     Active Substance: LORAZEPAM
     Indication: Anxiety
  11. CAFFEINE [Concomitant]
     Active Substance: CAFFEINE
  12. CALCIUM GLUBIONATE [Concomitant]
     Active Substance: CALCIUM GLUBIONATE
  13. MINERALS\VITAMINS [Concomitant]
     Active Substance: MINERALS\VITAMINS
  14. CHOLECALCIFEROL [Concomitant]
     Active Substance: CHOLECALCIFEROL
  15. CYANOCOBALAMIN [Concomitant]
     Active Substance: CYANOCOBALAMIN
  16. ELBASVIR [Concomitant]
     Active Substance: ELBASVIR
  17. ERGOCALCIFEROL [Concomitant]
     Active Substance: ERGOCALCIFEROL
  18. GLUCOSAMINE [Concomitant]
     Active Substance: GLUCOSAMINE
  19. IBUPROFEN [Concomitant]
     Active Substance: IBUPROFEN
  20. LANSOPRAZOLE [Concomitant]
     Active Substance: LANSOPRAZOLE
  21. LEVOTHYROXINE SODIUM [Concomitant]
     Active Substance: LEVOTHYROXINE SODIUM
  22. LISINOPRIL [Concomitant]
     Active Substance: LISINOPRIL
  23. LORAZEPAM [Concomitant]
     Active Substance: LORAZEPAM
  24. MAGNESIUM [Concomitant]
     Active Substance: MAGNESIUM
  25. MELOXICAM [Concomitant]
     Active Substance: MELOXICAM
  26. PIROXICAM [Concomitant]
     Active Substance: PIROXICAM
  27. PREDNISOLONE [Concomitant]
     Active Substance: PREDNISOLONE
  28. QUETIAPINE [Concomitant]
     Active Substance: QUETIAPINE
  29. QUETIAPINE FUMARATE [Concomitant]
     Active Substance: QUETIAPINE FUMARATE
  30. RAMIPRIL [Concomitant]
     Active Substance: RAMIPRIL
  31. RISEDRONATE SODIUM [Concomitant]
     Active Substance: RISEDRONATE SODIUM
  32. SULFASALAZINE [Concomitant]
     Active Substance: SULFASALAZINE
  33. FISH OIL [Concomitant]
     Active Substance: FISH OIL
  34. VITAMIN D3 [Concomitant]
     Active Substance: CHOLECALCIFEROL

REACTIONS (120)
  - Abdominal discomfort [Fatal]
  - Alopecia [Fatal]
  - Anti-cyclic citrullinated peptide antibody positive [Fatal]
  - Arthropathy [Fatal]
  - Condition aggravated [Fatal]
  - Contraindicated product administered [Fatal]
  - Discomfort [Fatal]
  - Drug intolerance [Fatal]
  - Maternal exposure timing unspecified [Unknown]
  - Fatigue [Fatal]
  - Glossodynia [Fatal]
  - Hand deformity [Fatal]
  - Infusion related reaction [Fatal]
  - Pain [Fatal]
  - Pemphigus [Fatal]
  - Off label use [Fatal]
  - Rheumatoid arthritis [Fatal]
  - Rheumatoid factor positive [Fatal]
  - Swelling [Fatal]
  - Systemic lupus erythematosus [Fatal]
  - Wound [Fatal]
  - Liver injury [Fatal]
  - Psoriatic arthropathy [Fatal]
  - Product use issue [Fatal]
  - Drug ineffective [Fatal]
  - Treatment failure [Fatal]
  - Abdominal pain [Fatal]
  - Abdominal pain upper [Fatal]
  - Adjustment disorder with depressed mood [Fatal]
  - Amnesia [Fatal]
  - Arthralgia [Fatal]
  - Asthenia [Fatal]
  - Blister [Fatal]
  - Blood cholesterol increased [Fatal]
  - Breast cancer stage III [Fatal]
  - Bursitis [Fatal]
  - C-reactive protein abnormal [Fatal]
  - Chest pain [Fatal]
  - Colitis ulcerative [Fatal]
  - Confusional state [Fatal]
  - Decreased appetite [Fatal]
  - Delirium [Fatal]
  - Depression [Fatal]
  - Diarrhoea [Fatal]
  - Dislocation of vertebra [Fatal]
  - Dizziness [Fatal]
  - Drug hypersensitivity [Fatal]
  - Dry mouth [Fatal]
  - Duodenal ulcer perforation [Fatal]
  - Feeling hot [Fatal]
  - Fibromyalgia [Fatal]
  - Frequent bowel movements [Fatal]
  - Gait disturbance [Fatal]
  - Grip strength decreased [Fatal]
  - Inflammation [Fatal]
  - Intentional product misuse [Fatal]
  - Irritable bowel syndrome [Fatal]
  - Joint range of motion decreased [Fatal]
  - Laboratory test abnormal [Fatal]
  - Lip dry [Fatal]
  - Liver disorder [Fatal]
  - Lung disorder [Fatal]
  - Memory impairment [Fatal]
  - Mobility decreased [Fatal]
  - Muscle spasms [Fatal]
  - Muscular weakness [Fatal]
  - Musculoskeletal pain [Fatal]
  - Night sweats [Fatal]
  - Obesity [Fatal]
  - Oedema peripheral [Fatal]
  - Osteoarthritis [Fatal]
  - Pain in extremity [Fatal]
  - Pancreatitis [Fatal]
  - Paraesthesia [Fatal]
  - Pericarditis [Fatal]
  - Peripheral venous disease [Fatal]
  - Porphyria acute [Fatal]
  - Rectal haemorrhage [Fatal]
  - Rash [Fatal]
  - Sciatica [Fatal]
  - Synovitis [Fatal]
  - Therapy non-responder [Fatal]
  - Underdose [Fatal]
  - Vomiting [Fatal]
  - Weight decreased [Fatal]
  - Weight increased [Fatal]
  - Wheezing [Fatal]
  - White blood cell count increased [Fatal]
  - Wound infection [Fatal]
  - Joint dislocation [Fatal]
  - Injury [Fatal]
  - Joint stiffness [Fatal]
  - Joint swelling [Fatal]
  - Laryngitis [Fatal]
  - Liver function test increased [Fatal]
  - Lower limb fracture [Fatal]
  - Lupus vulgaris [Fatal]
  - Lupus-like syndrome [Fatal]
  - Muscle injury [Fatal]
  - Musculoskeletal stiffness [Fatal]
  - Nasopharyngitis [Fatal]
  - Nausea [Fatal]
  - Oedema [Fatal]
  - Intentional product use issue [Fatal]
  - Type 2 diabetes mellitus [Fatal]
  - Autoimmune disorder [Fatal]
  - Deep vein thrombosis postoperative [Fatal]
  - Hypertransaminasaemia [Fatal]
  - Hypertension [Fatal]
  - Peripheral swelling [Fatal]
  - Prescribed overdose [Fatal]
  - Rheumatic fever [Fatal]
  - Swollen joint count increased [Fatal]
  - Therapeutic product effect decreased [Fatal]
  - Therapeutic response decreased [Fatal]
  - Anxiety [Fatal]
  - Asthma [Fatal]
  - C-reactive protein [Fatal]
  - Hypersensitivity [Fatal]
  - Leukopenia [Fatal]
